FAERS Safety Report 7712704-3 (Version None)
Quarter: 2011Q3

REPORT INFORMATION
  Report Type: 
  Country: None (occurrence: None)
  Receive Date: 20110826
  Receipt Date: 20110812
  Transmission Date: 20111222
  Serious: Yes (Hospitalization)
  Sender: FDA-Public Use
  Company Number: US-GLAXOSMITHKLINE-A0817830A

PATIENT
  Age: 52 Year
  Sex: Male
  Weight: 89.1 kg

DRUGS (10)
  1. INSULIN [Concomitant]
  2. NORTRIPTYLINE HCL [Concomitant]
  3. AVANDIA [Suspect]
     Indication: DIABETES MELLITUS
     Dosage: 8MG PER DAY
     Route: 048
     Dates: start: 20031101, end: 20060101
  4. EFFEXOR [Concomitant]
  5. LEVOTHROID [Concomitant]
  6. SEROQUEL [Concomitant]
  7. CRESTOR [Concomitant]
  8. ZETIA [Concomitant]
  9. PROTONIX [Concomitant]
  10. LISINOPRIL [Concomitant]

REACTIONS (4)
  - CARDIAC FAILURE CONGESTIVE [None]
  - MYOCARDIAL INFARCTION [None]
  - ISCHAEMIC CARDIOMYOPATHY [None]
  - CORONARY ARTERY DISEASE [None]
